FAERS Safety Report 17315874 (Version 1)
Quarter: 2020Q1

REPORT INFORMATION
  Report Type: Spontaneous
  Country: US (occurrence: US)
  Receive Date: 20200124
  Receipt Date: 20200124
  Transmission Date: 20200409
  Serious: Yes (Other)
  Sender: FDA-Public Use
  Company Number: US-SA-2020SA014617

PATIENT
  Age: 38 Year

DRUGS (1)
  1. GOLD BOND FRICTION DEFENSE [Suspect]
     Active Substance: .ALPHA.-TOCOPHEROL\ALOE VERA LEAF\ZINC OXIDE
     Dosage: UNK

REACTIONS (1)
  - Corynebacterium infection [Recovered/Resolved]

NARRATIVE: CASE EVENT DATE: 20191015
